FAERS Safety Report 7372963-6 (Version None)
Quarter: 2011Q1

REPORT INFORMATION
  Report Type: 
  Country: None (occurrence: None)
  Receive Date: 20110324
  Receipt Date: 20110315
  Transmission Date: 20110831
  Serious: Yes (Hospitalization, Other)
  Sender: FDA-Public Use
  Company Number: BR-ELI_LILLY_AND_COMPANY-BR201102001616

PATIENT
  Age: 30 Year
  Sex: Male

DRUGS (3)
  1. TEGRETOL [Concomitant]
     Indication: CONVULSION
     Dosage: 200 MG, 3/D
     Route: 065
  2. ZYPREXA [Suspect]
     Indication: SCHIZOPHRENIA
     Dosage: 10 MG, EACH EVENING
     Route: 065
     Dates: start: 20101010
  3. FLUOXETINE HYDROCHLORIDE [Suspect]
     Indication: CRYING
     Dosage: 20 MG, EACH MORNING
     Route: 065

REACTIONS (5)
  - FACE INJURY [None]
  - PULMONARY ARTERY STENOSIS [None]
  - FACIAL BONES FRACTURE [None]
  - CONVULSION [None]
  - CLAVICLE FRACTURE [None]
